FAERS Safety Report 15494042 (Version 1)
Quarter: 2018Q4

REPORT INFORMATION
  Report Type: Spontaneous
  Country: FR (occurrence: FR)
  Receive Date: 20181012
  Receipt Date: 20181012
  Transmission Date: 20190205
  Serious: Yes (Other)
  Sender: FDA-Public Use
  Company Number: FR-SA-2018SA277955

PATIENT
  Age: 19 Year
  Sex: Male

DRUGS (1)
  1. RIFINAH [Suspect]
     Active Substance: ISONIAZID\RIFAMPIN
     Indication: LATENT TUBERCULOSIS
     Dosage: 2 DF, QD
     Route: 048
     Dates: start: 20180227, end: 20180413

REACTIONS (1)
  - Neutropenia [Recovering/Resolving]

NARRATIVE: CASE EVENT DATE: 20180302
